FAERS Safety Report 7058507-7 (Version None)
Quarter: 2010Q4

REPORT INFORMATION
  Report Type: 
  Country: None (occurrence: None)
  Receive Date: 20101022
  Receipt Date: 20100910
  Transmission Date: 20110411
  Serious: Yes (Other)
  Sender: FDA-Public Use
  Company Number: US-BAXTER-2010BH003452

PATIENT
  Age: 50 Year
  Sex: Female
  Weight: 120 kg

DRUGS (33)
  1. HEPARIN SODIUM INJECTION [Suspect]
     Indication: THROMBOSIS PROPHYLAXIS
     Route: 058
     Dates: start: 20071226, end: 20080115
  2. HEPARIN SODIUM INJECTION [Suspect]
     Route: 042
     Dates: start: 20080108, end: 20080108
  3. HEPARIN SODIUM INJECTION [Suspect]
     Route: 042
     Dates: start: 20080107, end: 20080107
  4. HEPARIN SODIUM INJECTION [Suspect]
     Route: 042
     Dates: start: 20080108, end: 20080108
  5. HEPARIN SODIUM INJECTION [Suspect]
     Route: 042
     Dates: start: 20080111, end: 20080111
  6. HEPARIN SODIUM INJECTION [Suspect]
     Route: 042
     Dates: start: 20080112, end: 20080112
  7. HEPARIN SODIUM INJECTION [Suspect]
     Route: 042
     Dates: start: 20080112, end: 20080112
  8. HEPARIN SODIUM INJECTION [Suspect]
     Route: 050
     Dates: start: 20080115, end: 20080115
  9. HEPARIN SODIUM INJECTION [Suspect]
     Route: 042
     Dates: start: 20080115, end: 20080115
  10. HEPARIN SODIUM INJECTION [Suspect]
     Route: 042
     Dates: start: 20080115, end: 20080115
  11. HEPARIN SODIUM INJECTION [Suspect]
     Route: 042
     Dates: start: 20080123, end: 20080123
  12. HEPARIN SODIUM INJECTION [Suspect]
     Indication: CARDIAC OPERATION
     Route: 065
     Dates: start: 20071201, end: 20080101
  13. HEPARIN SODIUM INJECTION [Suspect]
     Route: 065
     Dates: start: 20071201, end: 20080101
  14. HEPARIN SODIUM INJECTION [Suspect]
     Dosage: DOSE UNIT:UNITS PER KILOGRAM
     Route: 016
     Dates: start: 20080115, end: 20080115
  15. HEPARIN SODIUM INJECTION [Suspect]
     Dosage: DOSE UNIT:UNITS PER KILOGRAM
     Route: 016
     Dates: start: 20080115, end: 20080115
  16. RENAGEL [Concomitant]
     Indication: PRODUCT USED FOR UNKNOWN INDICATION
     Route: 065
  17. NEPHRO-VITE RX [Concomitant]
     Indication: PRODUCT USED FOR UNKNOWN INDICATION
     Route: 065
  18. CALCITRIOL [Concomitant]
     Indication: PRODUCT USED FOR UNKNOWN INDICATION
     Route: 065
  19. METOPROLOL [Concomitant]
     Indication: PRODUCT USED FOR UNKNOWN INDICATION
     Route: 065
  20. CARBAMAZEPINE [Concomitant]
     Indication: PRODUCT USED FOR UNKNOWN INDICATION
     Route: 065
  21. PLAVIX [Concomitant]
     Indication: PRODUCT USED FOR UNKNOWN INDICATION
     Route: 065
  22. REGLAN [Concomitant]
     Indication: PRODUCT USED FOR UNKNOWN INDICATION
     Route: 065
  23. ASPIRIN [Concomitant]
     Indication: PRODUCT USED FOR UNKNOWN INDICATION
     Route: 065
  24. ISOSORBIDE DINITRATE [Concomitant]
     Indication: PRODUCT USED FOR UNKNOWN INDICATION
     Route: 065
  25. LANTUS [Concomitant]
     Indication: PRODUCT USED FOR UNKNOWN INDICATION
     Route: 065
  26. ZAROXOLYN [Concomitant]
     Indication: PRODUCT USED FOR UNKNOWN INDICATION
     Route: 065
  27. LASIX [Concomitant]
     Indication: PRODUCT USED FOR UNKNOWN INDICATION
     Route: 065
  28. DIOVAN HCT [Concomitant]
     Indication: PRODUCT USED FOR UNKNOWN INDICATION
     Route: 065
  29. LIPITOR [Concomitant]
     Indication: PRODUCT USED FOR UNKNOWN INDICATION
     Route: 065
  30. HUMULIN R [Concomitant]
     Indication: PRODUCT USED FOR UNKNOWN INDICATION
     Route: 065
  31. MAGNESIUM [Concomitant]
     Indication: PRODUCT USED FOR UNKNOWN INDICATION
     Route: 065
  32. TRAMADOL [Concomitant]
     Indication: PRODUCT USED FOR UNKNOWN INDICATION
     Route: 065
  33. ZETIA [Concomitant]
     Indication: PRODUCT USED FOR UNKNOWN INDICATION
     Route: 065

REACTIONS (5)
  - ABDOMINAL PAIN [None]
  - HYPOTENSION [None]
  - NAUSEA [None]
  - SYNCOPE [None]
  - VOMITING [None]
